FAERS Safety Report 15019045 (Version 2)
Quarter: 2018Q3

REPORT INFORMATION
  Report Type: Spontaneous
  Country: US (occurrence: US)
  Receive Date: 20180616
  Receipt Date: 20180806
  Transmission Date: 20181010
  Serious: No
  Sender: FDA-Public Use
  Company Number: US-JNJFOC-20180600812

PATIENT
  Age: 80 Year
  Sex: Female
  Weight: 90.72 kg

DRUGS (2)
  1. WOMENS ROGAINE UNSCENTED [Suspect]
     Active Substance: MINOXIDIL
     Route: 061
  2. WOMENS ROGAINE UNSCENTED [Suspect]
     Active Substance: MINOXIDIL
     Indication: ALOPECIA
     Dosage: HALF CAPFUL AMOUNT
     Route: 061
     Dates: start: 20180405, end: 20180527

REACTIONS (4)
  - Product use in unapproved indication [Unknown]
  - Alopecia [Not Recovered/Not Resolved]
  - Overdose [Unknown]
  - Drug administration error [Unknown]

NARRATIVE: CASE EVENT DATE: 20180405
